FAERS Safety Report 19190786 (Version 1)
Quarter: 2021Q2

REPORT INFORMATION
  Report Type: Spontaneous
  Country: US (occurrence: US)
  Receive Date: 20210428
  Receipt Date: 20210428
  Transmission Date: 20210717
  Serious: No
  Sender: FDA-Public Use
  Company Number: US-ARBOR PHARMACEUTICALS, LLC-US-2020ARB000867

PATIENT
  Sex: Male

DRUGS (2)
  1. ERY?PED [Suspect]
     Active Substance: ERYTHROMYCIN ETHYLSUCCINATE
     Indication: DYSPEPSIA
     Dosage: 2 ML, TID
  2. ERY?PED [Suspect]
     Active Substance: ERYTHROMYCIN ETHYLSUCCINATE
     Dosage: 1 ML, BID

REACTIONS (3)
  - Product dose omission issue [Unknown]
  - Intentional product use issue [Unknown]
  - Off label use [Unknown]
